FAERS Safety Report 9260063 (Version 1)
Quarter: 2013Q2

REPORT INFORMATION
  Report Type: Spontaneous
  Country: FR (occurrence: FR)
  Receive Date: 20130429
  Receipt Date: 20130429
  Transmission Date: 20140414
  Serious: Yes (Hospitalization)
  Sender: FDA-Public Use
  Company Number: FR-JNJFOC-20130411335

PATIENT
  Age: 90 Year
  Sex: Male

DRUGS (7)
  1. RISPERDAL [Suspect]
     Indication: PRODUCT USED FOR UNKNOWN INDICATION
     Route: 048
  2. XANAX [Concomitant]
     Route: 048
  3. IMOVANE [Concomitant]
     Route: 048
  4. PREVISCAN (FLUINDIONE) [Concomitant]
     Route: 048
  5. LASILIX [Concomitant]
     Route: 048
  6. EUPANTOL [Concomitant]
     Route: 048
  7. DOLIPRANE [Concomitant]
     Route: 048

REACTIONS (2)
  - Dysphagia [Recovered/Resolved]
  - Pneumonia aspiration [Recovering/Resolving]
